FAERS Safety Report 13739482 (Version 1)
Quarter: 2017Q3

REPORT INFORMATION
  Report Type: Spontaneous
  Country: US (occurrence: US)
  Receive Date: 20170710
  Receipt Date: 20170710
  Transmission Date: 20171127
  Serious: Yes (Other)
  Sender: FDA-Public Use
  Company Number: None

PATIENT
  Age: 53 Year
  Sex: Male
  Weight: 56.4 kg

DRUGS (4)
  1. BLEOMYCIN [Suspect]
     Active Substance: BLEOMYCIN SULFATE
     Indication: KAPOSI^S SARCOMA
     Dosage: DOSE 24.2 UNITS
     Route: 042
     Dates: start: 20170322, end: 20170511
  2. EFAVIRENZ AND EMTRICITABINE AND TENOFOVIR DISOPROXIL FUMARATE [Suspect]
     Active Substance: EFAVIRENZ\EMTRICITABINE\TENOFOVIR\TENOFOVIR DISOPROXIL FUMARATE
     Indication: HIV INFECTION
     Route: 048
     Dates: start: 20170322, end: 20170608
  3. VINCRISTINE [Suspect]
     Active Substance: VINCRISTINE
     Indication: KAPOSI^S SARCOMA
     Route: 042
     Dates: start: 20170322, end: 20170511
  4. SEPTRIN (TRIMETHOPRIM/SULFAMETHOXAZOLE) [Concomitant]

REACTIONS (8)
  - Blood albumin decreased [None]
  - Neutrophil count decreased [None]
  - Treatment noncompliance [None]
  - CD4 lymphocytes decreased [None]
  - Platelet count decreased [None]
  - Blood phosphorus decreased [None]
  - Anaemia [None]
  - Blood sodium decreased [None]

NARRATIVE: CASE EVENT DATE: 20170608
